FAERS Safety Report 20232402 (Version 2)
Quarter: 2022Q1

REPORT INFORMATION
  Report Type: Spontaneous
  Country: JP (occurrence: JP)
  Receive Date: 20211227
  Receipt Date: 20220202
  Transmission Date: 20220423
  Serious: No
  Sender: FDA-Public Use
  Company Number: JP-GLAXOSMITHKLINE-JP2021JPN260880

PATIENT
  Sex: Female

DRUGS (1)
  1. VALACYCLOVIR HYDROCHLORIDE [Suspect]
     Active Substance: VALACYCLOVIR HYDROCHLORIDE
     Indication: Herpes virus infection
     Dosage: 600 MG PER DAY
     Route: 048
     Dates: start: 20211217, end: 20211220

REACTIONS (2)
  - Product residue present [Unknown]
  - Product use issue [Unknown]

NARRATIVE: CASE EVENT DATE: 20211218
